FAERS Safety Report 4529390-6 (Version None)
Quarter: 2004Q4

REPORT INFORMATION
  Report Type: 
  Country: None (occurrence: None)
  Receive Date: 20041214
  Receipt Date: 20041201
  Transmission Date: 20050328
  Serious: No
  Sender: FDA-Public Use
  Company Number: 2004UW24538

PATIENT
  Age: 34 Year
  Sex: Male

DRUGS (3)
  1. SEROQUEL [Suspect]
     Indication: SCHIZOPHRENIA
     Dosage: NI
     Dates: start: 20041026, end: 20040101
  2. ZOPICLONE [Concomitant]
  3. SEROQUEL [Suspect]
     Indication: SCHIZOPHRENIA
     Dosage: INCREASED DOSE
     Dates: start: 20040101

REACTIONS (5)
  - HALLUCINATION [None]
  - MEDICATION ERROR [None]
  - MENTAL IMPAIRMENT [None]
  - RESTLESSNESS [None]
  - SLEEP DISORDER [None]
